FAERS Safety Report 15208083 (Version 2)
Quarter: 2018Q4

REPORT INFORMATION
  Report Type: Spontaneous
  Country: NL (occurrence: NL)
  Receive Date: 20180727
  Receipt Date: 20181206
  Transmission Date: 20190204
  Serious: Yes (Other)
  Sender: FDA-Public Use
  Company Number: NL-MYLANLABS-2018M1058318

PATIENT
  Age: 29 Year
  Sex: Female

DRUGS (3)
  1. CLOZAPINE. [Suspect]
     Active Substance: CLOZAPINE
     Indication: SCHIZOPHRENIA
     Dosage: 600 MILLIGRAM, QD
  2. KETANSERIN. [Suspect]
     Active Substance: KETANSERIN
     Indication: HALLUCINATION
     Dosage: 20 MILLIGRAM
  3. OLANZAPINE. [Suspect]
     Active Substance: OLANZAPINE
     Indication: PRODUCT USED FOR UNKNOWN INDICATION
     Dosage: 300 MILLIGRAM

REACTIONS (3)
  - Dizziness [Recovered/Resolved]
  - Drug ineffective [Unknown]
  - Headache [Recovered/Resolved]
